FAERS Safety Report 15474390 (Version 1)
Quarter: 2018Q4

REPORT INFORMATION
  Report Type: Other
  Country: FR (occurrence: FR)
  Receive Date: 20181008
  Receipt Date: 20181008
  Transmission Date: 20190205
  Serious: Yes (Life-Threatening, Hospitalization)
  Sender: FDA-Public Use
  Company Number: FR-GENUS_LIFESCIENCES-USA-POI0580201800112

PATIENT
  Age: 51 Year
  Sex: Male
  Weight: 89 kg

DRUGS (6)
  1. OXYCODONE HCL CAPSULES [Suspect]
     Active Substance: OXYCODONE HYDROCHLORIDE
     Indication: PAIN
     Dates: start: 20160412, end: 20160423
  2. OXYCODONE HCL CAPSULES [Interacting]
     Active Substance: OXYCODONE HYDROCHLORIDE
     Dates: start: 20160412, end: 20160423
  3. FLUCONAZOLE. [Interacting]
     Active Substance: FLUCONAZOLE
     Indication: URINARY TRACT INFECTION FUNGAL
     Route: 042
     Dates: start: 20160422, end: 20160422
  4. DIAZEPAM. [Interacting]
     Active Substance: DIAZEPAM
  5. FLUCONAZOLE. [Interacting]
     Active Substance: FLUCONAZOLE
     Route: 042
     Dates: start: 20160423, end: 20160423
  6. PREGABALIN. [Concomitant]
     Active Substance: PREGABALIN

REACTIONS (3)
  - Respiratory depression [Recovered/Resolved]
  - Drug interaction [Recovered/Resolved]
  - Urinary tract infection [Recovered/Resolved]

NARRATIVE: CASE EVENT DATE: 20160420
